FAERS Safety Report 7743433-8 (Version None)
Quarter: 2011Q3

REPORT INFORMATION
  Report Type: 
  Country: None (occurrence: None)
  Receive Date: 20110912
  Receipt Date: 20110908
  Transmission Date: 20111222
  Serious: Yes (Death, Hospitalization)
  Sender: FDA-Public Use
  Company Number: PHEH2011US03615

PATIENT
  Sex: Female

DRUGS (1)
  1. GLEEVEC [Suspect]
     Dosage: 200 MG, QD

REACTIONS (3)
  - INTESTINAL ISCHAEMIA [None]
  - DEATH [None]
  - GENERAL PHYSICAL HEALTH DETERIORATION [None]
